FAERS Safety Report 7666415-3 (Version None)
Quarter: 2011Q3

REPORT INFORMATION
  Report Type: 
  Country: None (occurrence: None)
  Receive Date: 20110806
  Receipt Date: 20110531
  Transmission Date: 20111222
  Serious: No
  Sender: FDA-Public Use
  Company Number: US-ABBOTT-11P-163-0729264-00

PATIENT
  Sex: Male

DRUGS (1)
  1. NIASPAN [Suspect]
     Indication: HIGH DENSITY LIPOPROTEIN DECREASED
     Dosage: 1 IN 1 AT HOUR OF SLEEP
     Route: 048
     Dates: start: 20101001, end: 20101001

REACTIONS (3)
  - FLUSHING [None]
  - FEELING ABNORMAL [None]
  - PARAESTHESIA [None]
